FAERS Safety Report 5186944-4 (Version None)
Quarter: 2006Q4

REPORT INFORMATION
  Report Type: 
  Country: None (occurrence: None)
  Receive Date: 20061212
  Receipt Date: 20061127
  Transmission Date: 20070319
  Serious: Yes (Other)
  Sender: FDA-Public Use
  Company Number: 2006145055

PATIENT
  Age: 62 Year
  Sex: Female
  Weight: 59.8748 kg

DRUGS (8)
  1. ROGAINE [Suspect]
     Indication: ALOPECIA
     Dosage: 1 ML TWICE DAILY, TOPICAL
     Route: 061
     Dates: start: 20060725, end: 20061120
  2. ROPINIROLE HYDROCHLORIDE (ROPINIROLE HYDROCHLORIDE) [Concomitant]
  3. LISINOPRIL [Concomitant]
  4. IRON (IRON) [Concomitant]
  5. EZETIMIBE (EZETIMIBE) [Concomitant]
  6. TRAZODONE HCL [Concomitant]
  7. TIZANIDINE HCL [Concomitant]
  8. LANSOPRAZOLE [Concomitant]

REACTIONS (2)
  - BLOOD SODIUM ABNORMAL [None]
  - SYNCOPE [None]
